FAERS Safety Report 15533316 (Version 2)
Quarter: 2025Q2

REPORT INFORMATION
  Report Type: Spontaneous
  Country: JP (occurrence: JP)
  Receive Date: 20181019
  Receipt Date: 20250602
  Transmission Date: 20250717
  Serious: Yes (Hospitalization, Other)
  Sender: JOHNSON AND JOHNSON
  Company Number: JP-JNJFOC-20180604965

PATIENT
  Age: 81 Year
  Sex: Male

DRUGS (2)
  1. ZYTIGA [Suspect]
     Active Substance: ABIRATERONE ACETATE
     Indication: Prostate cancer recurrent
     Route: 048
     Dates: start: 20180404, end: 201805
  2. PREDNISOLONE [Concomitant]
     Active Substance: PREDNISOLONE
     Indication: Prostate cancer recurrent
     Route: 065
     Dates: start: 20180404

REACTIONS (4)
  - Hypokalaemia [Recovering/Resolving]
  - Condition aggravated [Recovering/Resolving]
  - Renal impairment [Unknown]
  - Blood aldosterone increased [Recovering/Resolving]

NARRATIVE: CASE EVENT DATE: 20180502
